FAERS Safety Report 23814997 (Version 1)
Quarter: 2024Q2

REPORT INFORMATION
  Report Type: Spontaneous
  Country: US (occurrence: US)
  Receive Date: 20240503
  Receipt Date: 20240503
  Transmission Date: 20240716
  Serious: Yes (Hospitalization)
  Sender: FDA-Public Use
  Company Number: US-MYLANLABS-2024M1040077

PATIENT
  Age: 38 Year
  Sex: Female

DRUGS (4)
  1. LIDOCAINE [Suspect]
     Active Substance: LIDOCAINE
     Indication: Postoperative analgesia
     Dosage: UNK, AUTO BOLUS 15ML EVERY 2HOURS AND DEMAND BOLUS 10ML EVERY 30 MINUTES
     Route: 065
  2. EPINEPHRINE [Suspect]
     Active Substance: EPINEPHRINE
     Indication: Product used for unknown indication
     Dosage: 0.08 MICROGRAM/KILOGRAM, QMINUTE,INFUSION
     Route: 065
  3. EPINEPHRINE [Suspect]
     Active Substance: EPINEPHRINE
     Dosage: 0.01 MICROGRAM/KILOGRAM, QMINUTE,REDUCED ON POSTOPERATIVE DAY 2,INFUSION
     Route: 065
  4. NITRIC OXIDE [Suspect]
     Active Substance: NITRIC OXIDE
     Indication: Product used for unknown indication
     Dosage: UNK,20 PPM
     Route: 055

REACTIONS (1)
  - Local anaesthetic systemic toxicity [Recovered/Resolved]
